FAERS Safety Report 5907953 (Version 2)
Quarter: 2013Q2

REPORT INFORMATION
  Report Type: Spontaneous
  Country: GB (occurrence: None)
  Receive Date: 20051017
  Receipt Date: 20130429
  Transmission Date: 20140414
  Serious: No
  Sender: FDA-Public Use
  Company Number: 2005US-00878

PATIENT
  Age: 42 Year
  Sex: Male

DRUGS (1)
  1. GANCICLOVIR SODIUM [Suspect]
     Indication: ANTIVIRAL PROPHYLAXIS
     Route: 042

REACTIONS (2)
  - NEUTROPHIL MORPHOLOGY ABNORMAL [None]
  - BONE MARROW FAILURE [None]
